FAERS Safety Report 11158506 (Version 2)
Quarter: 2015Q2

REPORT INFORMATION
  Report Type: Spontaneous
  Country: US (occurrence: US)
  Receive Date: 20150603
  Receipt Date: 20150622
  Transmission Date: 20150821
  Serious: Yes (Other)
  Sender: FDA-Public Use
  Company Number: US-PFIZER INC-2015180677

PATIENT
  Age: 77 Year
  Sex: Female
  Weight: 54 kg

DRUGS (8)
  1. AMLODIPINE [Concomitant]
     Active Substance: AMLODIPINE BESYLATE
  2. VITAMIN D [Concomitant]
     Active Substance: CHOLECALCIFEROL
  3. ADVIL [Suspect]
     Active Substance: IBUPROFEN
     Indication: BACK PAIN
  4. TEMAZEPAM. [Concomitant]
     Active Substance: TEMAZEPAM
     Indication: SLEEP DISORDER
     Dosage: UNK
  5. ADVIL [Suspect]
     Active Substance: IBUPROFEN
     Indication: PAIN IN EXTREMITY
     Dosage: 3 CAPSULES EVERY TWO HOURS THREE TIMES A DAY AS NEEDED (9 CAPSULES PER DAY)
     Route: 048
     Dates: start: 2007, end: 201506
  6. RAMIPRIL. [Concomitant]
     Active Substance: RAMIPRIL
     Dosage: 10 MG, UNK
  7. ADVIL [Suspect]
     Active Substance: IBUPROFEN
     Indication: PAIN
  8. RAMIPRIL. [Concomitant]
     Active Substance: RAMIPRIL
     Indication: HYPERTENSION
     Dosage: 1 DF, DAILY

REACTIONS (14)
  - Fall [Unknown]
  - Breast pain [Unknown]
  - Arthropathy [Unknown]
  - Drug abuse [Unknown]
  - Accidental overdose [Not Recovered/Not Resolved]
  - Stress [Unknown]
  - Vomiting [Unknown]
  - Gastric haemorrhage [Unknown]
  - Internal haemorrhage [Unknown]
  - Haemorrhage [Not Recovered/Not Resolved]
  - Blood test abnormal [Not Recovered/Not Resolved]
  - Oropharyngeal pain [Unknown]
  - Procedural pain [Unknown]
  - Gastritis [Unknown]

NARRATIVE: CASE EVENT DATE: 20141009
